FAERS Safety Report 23858436 (Version 2)
Quarter: 2024Q3

REPORT INFORMATION
  Report Type: Report from Study
  Country: US (occurrence: US)
  Receive Date: 20240515
  Receipt Date: 20240711
  Transmission Date: 20241017
  Serious: Yes (Other)
  Sender: ABBVIE
  Company Number: US-ABBVIE-5755877

PATIENT
  Age: 39 Year
  Sex: Female

DRUGS (2)
  1. HUMIRA [Suspect]
     Active Substance: ADALIMUMAB
     Indication: Hidradenitis
     Dosage: CITRATE FREE?FORM STRENGTH WAS 40 MILLIGRAMS
     Route: 058
     Dates: start: 202107
  2. HUMIRA [Suspect]
     Active Substance: ADALIMUMAB
     Dosage: CITRATE FREE?FORM STRENGTH WAS 40 MILLIGRAMS
     Route: 058

REACTIONS (11)
  - Ligament injury [Unknown]
  - Pain in extremity [Not Recovered/Not Resolved]
  - Hidradenitis [Recovered/Resolved]
  - Joint range of motion decreased [Not Recovered/Not Resolved]
  - Tendon injury [Unknown]
  - Stress [Unknown]
  - Mental disorder [Unknown]
  - Limb injury [Unknown]
  - Impaired healing [Not Recovered/Not Resolved]
  - Temperature intolerance [Unknown]
  - Hidradenitis [Recovered/Resolved]

NARRATIVE: CASE EVENT DATE: 20240101
